FAERS Safety Report 7318358-2 (Version None)
Quarter: 2011Q1

REPORT INFORMATION
  Report Type: 
  Country: None (occurrence: None)
  Receive Date: 20110217
  Receipt Date: 20110217
  Transmission Date: 20110831
  Serious: Yes (Disabling)
  Sender: FDA-Public Use
  Company Number: None

PATIENT
  Age: 50 Year
  Sex: Female
  Weight: 88.4514 kg

DRUGS (1)
  1. GENTAMICIN [Suspect]
     Indication: OSTEOMYELITIS
     Route: 042
     Dates: start: 20101216, end: 20110106

REACTIONS (5)
  - VERTIGO [None]
  - GAIT DISTURBANCE [None]
  - GENERAL PHYSICAL HEALTH DETERIORATION [None]
  - NAUSEA [None]
  - DIZZINESS [None]
